FAERS Safety Report 10086912 (Version 4)
Quarter: 2020Q4

REPORT INFORMATION
  Report Type: Spontaneous
  Country: JP (occurrence: JP)
  Receive Date: 20140418
  Receipt Date: 20201026
  Transmission Date: 20210113
  Serious: Yes (Hospitalization, Other)
  Sender: FDA-Public Use
  Company Number: JP-PFIZER INC-2004050515

PATIENT
  Age: 33 Year
  Sex: Male

DRUGS (1)
  1. VIAGRA [Suspect]
     Active Substance: SILDENAFIL CITRATE
     Dosage: 2400 MG
     Route: 048
     Dates: start: 20040711, end: 20040711

REACTIONS (6)
  - Retinal vascular disorder [Recovered/Resolved]
  - Visual field defect [Not Recovered/Not Resolved]
  - Colour blindness [Recovered/Resolved]
  - Visual field defect [Not Recovered/Not Resolved]
  - Intentional overdose [Unknown]
  - Papilloedema [Recovered/Resolved]

NARRATIVE: CASE EVENT DATE: 200407
